FAERS Safety Report 25408868 (Version 2)
Quarter: 2025Q2

REPORT INFORMATION
  Report Type: Spontaneous
  Country: PT (occurrence: PT)
  Receive Date: 20250607
  Receipt Date: 20250614
  Transmission Date: 20250716
  Serious: Yes (Hospitalization, Other)
  Sender: CELLTRION
  Company Number: PT-PFIZER INC-PV202400163154

PATIENT

DRUGS (3)
  1. INFLIXIMAB [Suspect]
     Active Substance: INFLIXIMAB
     Indication: Spondyloarthropathy
     Route: 065
  2. INFLIXIMAB [Suspect]
     Active Substance: INFLIXIMAB
  3. VORICONAZOLE [Suspect]
     Active Substance: VORICONAZOLE
     Indication: Aspergilloma
     Route: 065

REACTIONS (9)
  - Cerebral artery embolism [Unknown]
  - Embolic stroke [Unknown]
  - Fungal endocarditis [Unknown]
  - Aspergillus infection [Unknown]
  - Haematoma [Unknown]
  - Pneumonia [Unknown]
  - Aspergilloma [Unknown]
  - Drug ineffective [Unknown]
  - Off label use [Unknown]
